FAERS Safety Report 8836244 (Version 1)
Quarter: 2012Q4

REPORT INFORMATION
  Report Type: 
  Country: AR (occurrence: AR)
  Receive Date: 20121011
  Receipt Date: 20121011
  Transmission Date: 20130627
  Serious: Yes (Other)
  Sender: FDA-Public Use
  Company Number: PHHY2012AR088233

PATIENT
  Age: 11 Year
  Sex: Female

DRUGS (2)
  1. LEUPROLIDE [Suspect]
     Dates: start: 201202, end: 201207
  2. SOMATROPIN [Suspect]
     Dates: start: 201202, end: 201207

REACTIONS (3)
  - Bronchospasm [Unknown]
  - Hypersensitivity [Unknown]
  - Urticaria [Unknown]
